FAERS Safety Report 9428226 (Version 1)
Quarter: 2013Q3

REPORT INFORMATION
  Report Type: Spontaneous
  Country: US (occurrence: US)
  Receive Date: 20130730
  Receipt Date: 20130730
  Transmission Date: 20140515
  Serious: No
  Sender: FDA-Public Use
  Company Number: US-BAYER-2013-089982

PATIENT
  Sex: Female

DRUGS (1)
  1. MIRENA [Suspect]
     Dosage: UNK
     Dates: start: 2010

REACTIONS (6)
  - Asthenia [None]
  - Anxiety [None]
  - Headache [None]
  - Alopecia [None]
  - Pruritus generalised [None]
  - Syncope [None]
